FAERS Safety Report 5131488-9 (Version None)
Quarter: 2006Q4

REPORT INFORMATION
  Report Type: 
  Country: None (occurrence: None)
  Receive Date: 20061020
  Receipt Date: 20061010
  Transmission Date: 20070319
  Serious: Yes (Hospitalization, Other)
  Sender: FDA-Public Use
  Company Number: US-JNJFOC-20040704308

PATIENT
  Sex: Female
  Weight: 90.72 kg

DRUGS (30)
  1. DURAGESIC-100 [Suspect]
     Route: 062
  2. DURAGESIC-100 [Suspect]
     Route: 062
  3. DURAGESIC-100 [Suspect]
     Indication: PAIN
     Route: 062
  4. BACLOFEN [Concomitant]
     Route: 048
  5. BACLOFEN [Concomitant]
     Route: 048
  6. LEXAPRO [Concomitant]
  7. RESTORIL [Concomitant]
  8. NORVASC [Concomitant]
     Route: 048
  9. ATIVAN [Concomitant]
     Indication: DYSURIA
  10. COUMADIN [Concomitant]
     Route: 048
  11. COUMADIN [Concomitant]
     Route: 048
  12. COUMADIN [Concomitant]
     Route: 048
  13. LEVOTHROID [Concomitant]
     Route: 048
  14. ACTIQ [Concomitant]
     Dosage: 600 UG EVERY FOUR HOURS AS NEEDED, ORAL
     Route: 048
  15. DILAUDID [Concomitant]
  16. NEXIUM [Concomitant]
  17. ZANAFLEX [Concomitant]
     Route: 048
  18. CENESTIN [Concomitant]
     Route: 048
  19. ADVAIR HFA [Concomitant]
  20. COMBIVENT [Concomitant]
     Dosage: 103-18 UG/ACT, TWO PUFFS EVERY 4 TO 6 HOURS AS NEEDED
  21. ANTIVERT [Concomitant]
     Dosage: 12.5 MG THREE TIMES DAILY AS NEEDED (TAKES RARELY)
  22. DYAZIDE [Concomitant]
     Indication: OEDEMA
     Dosage: 1 TO 2 PER DAY AS NEEDED
  23. VITAMIN E [Concomitant]
  24. IMMUNE GLOBULIN INTRAVENOUS (HUMAN) [Concomitant]
     Indication: SNEDDON'S SYNDROME
  25. ATARAX [Concomitant]
     Route: 048
  26. PROTONIX [Concomitant]
     Route: 048
  27. LASIX [Concomitant]
     Route: 048
  28. LASIX [Concomitant]
     Route: 048
  29. DOXYCYCLINE [Concomitant]
  30. PROZAC [Concomitant]
     Route: 048

REACTIONS (23)
  - BALANCE DISORDER [None]
  - CELLULITIS [None]
  - CONTUSION [None]
  - DEVICE LEAKAGE [None]
  - DIPLOPIA [None]
  - DROP ATTACKS [None]
  - EMOTIONAL DISTRESS [None]
  - EPISTAXIS [None]
  - FALL [None]
  - FATIGUE [None]
  - FEELING ABNORMAL [None]
  - FOOT FRACTURE [None]
  - GAIT DISTURBANCE [None]
  - LACERATION [None]
  - LOSS OF CONSCIOUSNESS [None]
  - OVERDOSE [None]
  - PAIN [None]
  - PHARMACEUTICAL PRODUCT COMPLAINT [None]
  - POOR QUALITY DRUG ADMINISTERED [None]
  - SLEEP APNOEA SYNDROME [None]
  - SOMNOLENCE [None]
  - TOOTH FRACTURE [None]
  - VISION BLURRED [None]
